FAERS Safety Report 5892980-2 (Version None)
Quarter: 2008Q3

REPORT INFORMATION
  Report Type: 
  Country: None (occurrence: None)
  Receive Date: 20080923
  Receipt Date: 20070702
  Transmission Date: 20090109
  Serious: No
  Sender: FDA-Public Use
  Company Number: US-ASTRAZENECA-2007UW15598

PATIENT
  Age: 42 Year
  Sex: Male
  Weight: 64.9 kg

DRUGS (5)
  1. SEROQUEL [Suspect]
     Indication: DEPRESSION
     Route: 048
  2. SEROQUEL [Suspect]
     Indication: ASPERGER'S DISORDER
     Route: 048
  3. SEROQUEL [Suspect]
     Indication: AUTISM
     Route: 048
  4. LORTAB [Concomitant]
  5. PROTONIX [Concomitant]

REACTIONS (6)
  - IRRITABILITY [None]
  - MUSCULAR WEAKNESS [None]
  - OROPHARYNGEAL PAIN [None]
  - POLLAKIURIA [None]
  - SOMNOLENCE [None]
  - URINARY TRACT INFECTION [None]
